FAERS Safety Report 5796127-2 (Version None)
Quarter: 2008Q3

REPORT INFORMATION
  Report Type: 
  Country: None (occurrence: None)
  Receive Date: 20080701
  Receipt Date: 20080626
  Transmission Date: 20090109
  Serious: Yes (Other)
  Sender: FDA-Public Use
  Company Number: GB-TEVA-173510ISR

PATIENT
  Age: 55 Year
  Sex: Male

DRUGS (4)
  1. COPAXONE [Suspect]
     Indication: MULTIPLE SCLEROSIS
     Dates: start: 20070601
  2. PROPRANOLOL [Suspect]
     Indication: SENSORY DISTURBANCE
     Route: 048
     Dates: start: 20080525
  3. CITRUS X PARADISI FRUIT JUICE [Suspect]
     Route: 048
     Dates: start: 20080607
  4. DULOXETINE [Concomitant]
     Route: 048

REACTIONS (3)
  - DIZZINESS [None]
  - FOOD INTERACTION [None]
  - MALAISE [None]
